FAERS Safety Report 20455906 (Version 1)
Quarter: 2022Q1

REPORT INFORMATION
  Report Type: Spontaneous
  Country: US (occurrence: None)
  Receive Date: 20220210
  Receipt Date: 20220210
  Transmission Date: 20220423
  Serious: Yes (Life-Threatening, Hospitalization)
  Sender: FDA-Public Use
  Company Number: None

PATIENT
  Age: 81 Year
  Sex: Male

DRUGS (1)
  1. METOPROLOL TARTRATE [Suspect]
     Active Substance: METOPROLOL TARTRATE
     Indication: Hypertension
     Dosage: OTHER FREQUENCY : 1/2 TAB BID;?
     Route: 048
     Dates: start: 20210715, end: 20211121

REACTIONS (2)
  - Sinus bradycardia [None]
  - Therapy interrupted [None]

NARRATIVE: CASE EVENT DATE: 20211121
